FAERS Safety Report 4981209-5 (Version None)
Quarter: 2006Q1

REPORT INFORMATION
  Report Type: 
  Country: None (occurrence: None)
  Receive Date: 20060227
  Receipt Date: 20050425
  Transmission Date: 20060701
  Serious: Yes (Life-Threatening, Disabling)
  Sender: FDA-Public Use
  Company Number: WAES 0504USA04360

PATIENT
  Age: 53 Year
  Sex: Male

DRUGS (4)
  1. PROPECIA [Suspect]
     Indication: ALOPECIA
     Dosage: 1 MG DAILY, PO
     Route: 048
     Dates: start: 20050404, end: 20050418
  2. ATARAX [Concomitant]
  3. LIPITOR [Concomitant]
  4. PREDNISONE [Concomitant]

REACTIONS (1)
  - RASH PRURITIC [None]
